FAERS Safety Report 5122904-7 (Version None)
Quarter: 2006Q4

REPORT INFORMATION
  Report Type: 
  Country: None (occurrence: None)
  Receive Date: 20061009
  Receipt Date: 20051019
  Transmission Date: 20070319
  Serious: Yes (Hospitalization)
  Sender: FDA-Public Use
  Company Number: FR-ROCHE-421923

PATIENT
  Age: 53 Year
  Sex: Male

DRUGS (25)
  1. DACLIZUMAB [Suspect]
     Route: 042
     Dates: start: 20050807, end: 20050807
  2. DACLIZUMAB [Suspect]
     Route: 042
     Dates: start: 20050814, end: 20050814
  3. MYCOPHENOLATE MOFETIL [Suspect]
     Route: 042
     Dates: start: 20050807, end: 20050807
  4. MYCOPHENOLATE MOFETIL [Suspect]
     Dosage: RETURN TOWARDS PER PROTOCOL DOSE.
     Route: 042
     Dates: start: 20050808, end: 20050809
  5. MYCOPHENOLATE MOFETIL [Suspect]
     Route: 042
     Dates: start: 20050823, end: 20050824
  6. MYCOPHENOLATE MOFETIL [Suspect]
     Route: 042
     Dates: start: 20050825, end: 20050825
  7. MYCOPHENOLATE MOFETIL [Suspect]
     Route: 048
     Dates: start: 20050810, end: 20050822
  8. MYCOPHENOLATE MOFETIL [Suspect]
     Dosage: RETURN TOWARDS PER PROTOCOL DOSE.
     Route: 048
     Dates: start: 20050825, end: 20050825
  9. MYCOPHENOLATE MOFETIL [Suspect]
     Dosage: RETURN TOWARDS PER PROTOCOL DOSE.
     Route: 048
     Dates: start: 20050826, end: 20051003
  10. MYCOPHENOLATE MOFETIL [Suspect]
     Route: 048
     Dates: start: 20051004, end: 20051004
  11. TACROLIMUS [Suspect]
     Dosage: ADJUSTMENT TO REACH PREDEFINED TARGET LEVELS.
     Route: 048
     Dates: start: 20050811
  12. METHYLPREDNISOLONE [Suspect]
     Dosage: TAPER ACCORDING TO LOCAL PROTOCOL.
     Route: 065
     Dates: start: 20050807, end: 20050924
  13. PREDNISONE [Suspect]
     Route: 065
     Dates: start: 20050811, end: 20051027
  14. TAZOCILLINE [Concomitant]
     Indication: PROPHYLAXIS
     Dates: start: 20050807, end: 20050809
  15. ACETAMINOPHEN [Concomitant]
     Indication: PROPHYLAXIS
     Route: 065
     Dates: start: 20050807, end: 20050808
  16. OMEPRAZOLE [Concomitant]
     Indication: PROPHYLAXIS
     Dates: start: 20050807
  17. FUROSEMIDE [Concomitant]
     Indication: PROPHYLAXIS
     Dates: start: 20050807, end: 20050809
  18. NEFOPAM [Concomitant]
     Indication: PROPHYLAXIS
     Dates: start: 20050807, end: 20050809
  19. BISOPROLOL FUMARATE [Concomitant]
     Dates: start: 20050808
  20. GANCICLOVIR [Concomitant]
     Indication: PROPHYLAXIS
     Dates: start: 20050808, end: 20050812
  21. SPECIAFOLDINE [Concomitant]
     Indication: PROPHYLAXIS
     Dates: start: 20050808, end: 20050809
  22. 1 CONCOMITANT DRUG [Concomitant]
     Indication: PROPHYLAXIS
     Dates: start: 20050810, end: 20050811
  23. DESLORATADINE [Concomitant]
     Indication: PROPHYLAXIS
     Dates: start: 20050810
  24. HYDROXYZINE [Concomitant]
     Indication: PROPHYLAXIS
     Dates: start: 20050810, end: 20050811
  25. VALGANCICLOVIR HCL [Concomitant]
     Indication: PROPHYLAXIS
     Dates: start: 20050811

REACTIONS (8)
  - BILIARY CYST [None]
  - CANDIDIASIS [None]
  - CHOLANGITIS [None]
  - ENTEROCOCCAL SEPSIS [None]
  - HEPATIC ARTERY THROMBOSIS [None]
  - LIVER ABSCESS [None]
  - PERITONEAL EFFUSION [None]
  - STAPHYLOCOCCAL ABSCESS [None]
